FAERS Safety Report 4868941-9 (Version None)
Quarter: 2005Q4

REPORT INFORMATION
  Report Type: 
  Country: None (occurrence: None)
  Receive Date: 20051223
  Receipt Date: 20051215
  Transmission Date: 20060501
  Serious: Yes (Disabling, Other)
  Sender: FDA-Public Use
  Company Number: 2005169742

PATIENT
  Age: 58 Year
  Sex: Female

DRUGS (1)
  1. PREGABALIN (PREGABALIN) [Suspect]
     Indication: NEURALGIA
     Dosage: 600 MG (300 MG, 2 IN 1 D), ORAL
     Route: 048
     Dates: start: 20050301, end: 20050901

REACTIONS (14)
  - CLUMSINESS [None]
  - CONFUSIONAL STATE [None]
  - DEPRESSION [None]
  - DIFFICULTY IN WALKING [None]
  - DIPLOPIA [None]
  - EUPHORIC MOOD [None]
  - HEADACHE [None]
  - MEMORY IMPAIRMENT [None]
  - MOOD ALTERED [None]
  - OEDEMA PERIPHERAL [None]
  - RESTLESSNESS [None]
  - SELF ESTEEM INFLATED [None]
  - SLEEP DISORDER [None]
  - VERBIGERATION [None]
